FAERS Safety Report 8539528-1 (Version None)
Quarter: 2012Q3

REPORT INFORMATION
  Report Type: 
  Country: None (occurrence: None)
  Receive Date: 20120726
  Receipt Date: 20120716
  Transmission Date: 20120928
  Serious: Yes (Hospitalization)
  Sender: FDA-Public Use
  Company Number: US-BAYER-2012-022098

PATIENT
  Age: 18 Year
  Sex: Female
  Weight: 68.027 kg

DRUGS (7)
  1. YAZ [Suspect]
     Indication: ACNE
     Dosage: UNK
     Route: 048
     Dates: start: 20080701, end: 20090301
  2. MINOCIN [Concomitant]
     Dosage: 100 MG, UNK
     Route: 048
  3. NAPROSYN [Concomitant]
     Dosage: 500 MG, UNK
     Route: 048
     Dates: start: 20081204
  4. MEDROL [Concomitant]
  5. MOTRIN [Concomitant]
     Dosage: UNK
     Dates: start: 20081204
  6. OVCON-35 [Concomitant]
     Dosage: ONE, DAILY
     Route: 048
  7. ETHINYLESTRAD W/FERROUS FUM/NORETHISTER ACET [Concomitant]
     Dosage: ONE,DAILY
     Route: 048

REACTIONS (5)
  - PAIN [None]
  - INJURY [None]
  - DEEP VEIN THROMBOSIS [None]
  - FEAR [None]
  - PULMONARY EMBOLISM [None]
